FAERS Safety Report 6993903-5 (Version None)
Quarter: 2010Q3

REPORT INFORMATION
  Report Type: 
  Country: None (occurrence: None)
  Receive Date: 20100917
  Receipt Date: 20100706
  Transmission Date: 20110219
  Serious: No
  Sender: FDA-Public Use
  Company Number: US-ASTRAZENECA-2010SE14936

PATIENT
  Age: 45 Year
  Sex: Female
  Weight: 72.6 kg

DRUGS (2)
  1. SEROQUEL [Suspect]
     Indication: SCHIZOAFFECTIVE DISORDER
     Route: 048
     Dates: start: 20080101
  2. SEROQUEL [Suspect]
     Route: 048

REACTIONS (5)
  - ABNORMAL LOSS OF WEIGHT [None]
  - HALLUCINATION [None]
  - HALLUCINATION, AUDITORY [None]
  - PRE-EXISTING CONDITION IMPROVED [None]
  - SLEEP DISORDER [None]
